FAERS Safety Report 18843260 (Version 1)
Quarter: 2021Q1

REPORT INFORMATION
  Report Type: Report from Study
  Country: CA (occurrence: CA)
  Receive Date: 20210203
  Receipt Date: 20210203
  Transmission Date: 20210419
  Serious: No
  Sender: FDA-Public Use
  Company Number: CA-EXELIXIS-CABO-20027291

PATIENT
  Sex: Male
  Weight: 52.3 kg

DRUGS (1)
  1. CABOMETYX [Suspect]
     Active Substance: CABOZANTINIB S-MALATE
     Indication: RENAL CELL CARCINOMA
     Dosage: 60 MG, QD (16 DAYS OD FOLLOWED BY 7 DAYS OFF)
     Route: 048
     Dates: start: 20191203, end: 20200110

REACTIONS (2)
  - Drug intolerance [Unknown]
  - Asthenia [Unknown]
